FAERS Safety Report 5590656-2 (Version None)
Quarter: 2008Q1

REPORT INFORMATION
  Report Type: 
  Country: None (occurrence: None)
  Receive Date: 20080114
  Receipt Date: 20080110
  Transmission Date: 20080703
  Serious: Yes (Hospitalization)
  Sender: FDA-Public Use
  Company Number: FR-MERCK-0801FRA00034

PATIENT
  Age: 62 Year
  Sex: Male

DRUGS (5)
  1. HYZAAR [Suspect]
     Indication: HYPERTENSION
     Route: 048
     Dates: start: 19960615, end: 20070130
  2. METFORMIN HYDROCHLORIDE AND ROSIGLITAZONE MALEATE [Suspect]
     Indication: TYPE 2 DIABETES MELLITUS
     Route: 048
     Dates: start: 20060627, end: 20070103
  3. GLYBURIDE [Concomitant]
     Indication: TYPE 2 DIABETES MELLITUS
     Route: 048
     Dates: start: 19940615
  4. FENOFIBRATE [Concomitant]
     Indication: DYSLIPIDAEMIA
     Route: 048
     Dates: start: 19960615
  5. FUROSEMIDE AND SPIRONOLACTONE [Concomitant]
     Indication: HYPERTENSION
     Route: 048
     Dates: start: 19960615, end: 20070130

REACTIONS (3)
  - CARDIAC FAILURE [None]
  - FLUID RETENTION [None]
  - OEDEMA PERIPHERAL [None]
